FAERS Safety Report 10069901 (Version 2)
Quarter: 2014Q2

REPORT INFORMATION
  Report Type: Spontaneous
  Country: JP (occurrence: JP)
  Receive Date: 20140410
  Receipt Date: 20140505
  Transmission Date: 20141212
  Serious: No
  Sender: FDA-Public Use
  Company Number: JP-JNJFOC-20140318872

PATIENT
  Age: 90 Year
  Sex: Male

DRUGS (1)
  1. ONEDURO [Suspect]
     Indication: PAIN
     Dosage: 25 UG/HR + 12.5 UG/HR
     Route: 062

REACTIONS (4)
  - Nausea [Recovered/Resolved]
  - Dysphoria [Recovered/Resolved]
  - Dizziness [Recovered/Resolved]
  - Treatment noncompliance [Unknown]
